FAERS Safety Report 8541616-0 (Version None)
Quarter: 2012Q3

REPORT INFORMATION
  Report Type: 
  Country: None (occurrence: None)
  Receive Date: 20120726
  Receipt Date: 20120410
  Transmission Date: 20120928
  Serious: Yes (Life-Threatening, Hospitalization, Other)
  Sender: FDA-Public Use
  Company Number: NL-ABBOTT-12P-114-0903724-00

PATIENT
  Sex: Female
  Weight: 50 kg

DRUGS (6)
  1. IMURAN [Concomitant]
     Indication: PRODUCT USED FOR UNKNOWN INDICATION
  2. HUMIRA [Suspect]
     Route: 058
     Dates: start: 20110823
  3. AZATHIOPRINE [Suspect]
     Indication: CROHN'S DISEASE
     Route: 048
  4. HUMIRA [Suspect]
     Indication: CROHN'S DISEASE
     Route: 058
     Dates: start: 20090101
  5. HUMIRA [Suspect]
     Route: 058
     Dates: start: 20120101
  6. AMLODIPINE [Concomitant]
     Indication: HYPERTENSION
     Route: 048
     Dates: start: 20080101

REACTIONS (9)
  - SUICIDE ATTEMPT [None]
  - SUICIDAL IDEATION [None]
  - RASH MACULAR [None]
  - DEPRESSION [None]
  - COUGH [None]
  - NIGHT SWEATS [None]
  - TREATMENT NONCOMPLIANCE [None]
  - PREGNANCY TEST NEGATIVE [None]
  - HYSTERECTOMY [None]
